FAERS Safety Report 5099531-3 (Version None)
Quarter: 2006Q3

REPORT INFORMATION
  Report Type: 
  Country: None (occurrence: None)
  Receive Date: 20060908
  Receipt Date: 20060803
  Transmission Date: 20061208
  Serious: Yes (Disabling)
  Sender: FDA-Public Use
  Company Number: IE-AMGEN-UK189216

PATIENT
  Sex: Female
  Weight: 72.5 kg

DRUGS (8)
  1. NEULASTA [Suspect]
     Indication: CHEMOTHERAPY
     Route: 058
     Dates: start: 20060729, end: 20060729
  2. NU-SEALS ASPIRIN [Concomitant]
     Route: 048
  3. LANSOPRAZOLE [Concomitant]
     Route: 048
  4. FERROUS FUMARATE [Concomitant]
     Route: 048
  5. CLOPIDOGREL [Concomitant]
     Route: 048
  6. BUMETANIDE [Concomitant]
     Route: 048
  7. ATORVASTATIN CALCIUM [Concomitant]
     Route: 048
  8. SENNA [Concomitant]
     Route: 048

REACTIONS (5)
  - CHEST DISCOMFORT [None]
  - FLUSHING [None]
  - PALMAR ERYTHEMA [None]
  - PRURITUS GENERALISED [None]
  - TONGUE OEDEMA [None]
